FAERS Safety Report 10029826 (Version 2)
Quarter: 2014Q1

REPORT INFORMATION
  Report Type: Spontaneous
  Country: US (occurrence: None)
  Receive Date: 20140320
  Receipt Date: 20140331
  Transmission Date: 20141002
  Serious: Yes (Other)
  Sender: FDA-Public Use
  Company Number: 2014P1002338

PATIENT
  Age: 17 Year
  Sex: Female
  Weight: 58.97 kg

DRUGS (2)
  1. MYORISAN [Suspect]
     Indication: ACNE CYSTIC
     Route: 048
     Dates: start: 20131202
  2. TRI-SPRINTEC [Concomitant]

REACTIONS (6)
  - Drug hypersensitivity [None]
  - Nausea [None]
  - Urticaria [None]
  - Vomiting [None]
  - Lip swelling [None]
  - Swollen tongue [None]
